FAERS Safety Report 19021122 (Version 1)
Quarter: 2021Q1

REPORT INFORMATION
  Report Type: Spontaneous
  Country: SE (occurrence: SE)
  Receive Date: 20210317
  Receipt Date: 20210317
  Transmission Date: 20210420
  Serious: Yes (Disabling)
  Sender: FDA-Public Use
  Company Number: SE-ALLERGAN-2111324US

PATIENT
  Sex: Male

DRUGS (22)
  1. DAKTACORT [Concomitant]
     Active Substance: HYDROCORTISONE\MICONAZOLE NITRATE
  2. FURIX [Concomitant]
  3. CARIPRAZINE HCL ? BP [Suspect]
     Active Substance: CARIPRAZINE HYDROCHLORIDE
     Indication: SCHIZOAFFECTIVE DISORDER
     Dosage: 4.5 MG
     Dates: start: 202011, end: 20201218
  4. ENTRESTO [Concomitant]
     Active Substance: SACUBITRIL\VALSARTAN
  5. MELATONIN [Concomitant]
     Active Substance: MELATONIN
     Dosage: UNK
  6. METFORMIN [Concomitant]
     Active Substance: METFORMIN HYDROCHLORIDE
  7. DIMOR [Concomitant]
     Active Substance: LOPERAMIDE
  8. CARIPRAZINE HCL ? BP [Suspect]
     Active Substance: CARIPRAZINE HYDROCHLORIDE
     Dosage: 1.5 MG
     Dates: start: 20200625, end: 20200715
  9. SPIRONOLACTONE. [Concomitant]
     Active Substance: SPIRONOLACTONE
  10. STESOLID [Concomitant]
     Active Substance: DIAZEPAM
     Dosage: UNK
  11. CARIPRAZINE HCL ? BP [Suspect]
     Active Substance: CARIPRAZINE HYDROCHLORIDE
     Dosage: 3 MG
     Dates: start: 20200716, end: 202011
  12. GIONA EASYHALER [Concomitant]
     Active Substance: BUDESONIDE
  13. SILDENAFIL. [Concomitant]
     Active Substance: SILDENAFIL
     Dosage: UNK
  14. BUVENTOL EASYHALER [Concomitant]
     Active Substance: ALBUTEROL SULFATE
     Dosage: UNK
  15. PROPAVAN [Concomitant]
     Active Substance: PROPIOMAZINE
     Dosage: UNK
  16. ARIPIPRAZOLE (ANHYDROUS) [Concomitant]
     Active Substance: ARIPIPRAZOLE
  17. BEHEPAN [Concomitant]
  18. PANODIL [Concomitant]
     Active Substance: ACETAMINOPHEN
     Dosage: UNK
  19. SELOKENZOC [Concomitant]
     Active Substance: METOPROLOL SUCCINATE
  20. ESCITALOPRAM [Concomitant]
     Active Substance: ESCITALOPRAM OXALATE
  21. SIMVASTATIN. [Concomitant]
     Active Substance: SIMVASTATIN
  22. ELIQUIS [Concomitant]
     Active Substance: APIXABAN

REACTIONS (1)
  - Cardiac failure [Not Recovered/Not Resolved]

NARRATIVE: CASE EVENT DATE: 20201218
